FAERS Safety Report 5299305-4 (Version None)
Quarter: 2007Q2

REPORT INFORMATION
  Report Type: 
  Country: None (occurrence: None)
  Receive Date: 20070417
  Receipt Date: 20070412
  Transmission Date: 20071010
  Serious: Yes (Death, Life-Threatening, Hospitalization, Disabling, Other)
  Sender: FDA-Public Use
  Company Number: US-BAYER-200511572BWH

PATIENT
  Age: 69 Year
  Sex: Male
  Weight: 56 kg

DRUGS (10)
  1. SORAFENIB [Suspect]
     Indication: HEPATIC NEOPLASM MALIGNANT
     Dosage: TOTAL DAILY DOSE: 800 MG  UNIT DOSE: 200 MG
     Route: 048
     Dates: start: 20050708, end: 20051001
  2. MEGESTROL ACETATE [Concomitant]
     Indication: ANOREXIA
     Route: 048
     Dates: start: 20050415, end: 20050915
  3. MORPHINE SULFATE [Concomitant]
     Indication: CANCER PAIN
     Route: 048
     Dates: start: 20050415
  4. AMBIEN [Concomitant]
     Indication: INSOMNIA
     Route: 048
     Dates: start: 20050301, end: 20051016
  5. SPIRONOLACTONE [Concomitant]
     Indication: HEPATIC NEOPLASM MALIGNANT
     Route: 048
     Dates: start: 20050606
  6. ASPIRIN [Concomitant]
     Indication: ANTICOAGULANT THERAPY
     Dates: start: 20050823, end: 20050923
  7. XYLOCAINE 6% [Concomitant]
     Indication: HAEMOTHORAX
     Dates: start: 20050721, end: 20050721
  8. TYLENOL [Concomitant]
     Indication: PAIN PROPHYLAXIS
     Dates: start: 20050721, end: 20050726
  9. VALIUM [Concomitant]
     Indication: CONVULSION
     Dates: start: 20051011, end: 20051012
  10. MORPHINE SULFATE [Concomitant]
     Indication: PAIN
     Dates: start: 20051011, end: 20051016

REACTIONS (7)
  - ASTHENIA [None]
  - DEEP VEIN THROMBOSIS [None]
  - GRAND MAL CONVULSION [None]
  - HEPATIC NEOPLASM MALIGNANT [None]
  - JAUNDICE [None]
  - PNEUMOTHORAX TRAUMATIC [None]
  - UNRESPONSIVE TO STIMULI [None]
